FAERS Safety Report 6689304-X (Version None)
Quarter: 2010Q2

REPORT INFORMATION
  Report Type: 
  Country: None (occurrence: None)
  Receive Date: 20100416
  Receipt Date: 20100401
  Transmission Date: 20101027
  Serious: Yes (Other)
  Sender: FDA-Public Use
  Company Number: 1-22118257

PATIENT
  Age: 20 Year
  Sex: Male
  Weight: 58.9676 kg

DRUGS (2)
  1. SOLODYN [Suspect]
     Indication: ACNE
     Dosage: 65 MG ONCE DAILY, ORAL
     Route: 048
     Dates: start: 20100317
  2. SOLODYN [Suspect]
     Indication: FOLLICULITIS
     Dosage: 65 MG ONCE DAILY, ORAL
     Route: 048
     Dates: start: 20100317

REACTIONS (5)
  - CHALAZION [None]
  - EYE HAEMORRHAGE [None]
  - GRANULOMA [None]
  - INFLAMMATION [None]
  - VASCULAR FRAGILITY [None]
